FAERS Safety Report 17002687 (Version 1)
Quarter: 2019Q4

REPORT INFORMATION
  Report Type: Spontaneous
  Country: GB (occurrence: GB)
  Receive Date: 20191107
  Receipt Date: 20191107
  Transmission Date: 20200122
  Serious: Yes (Hospitalization)
  Sender: FDA-Public Use
  Company Number: GB-DEXPHARM-20190932

PATIENT
  Sex: Male

DRUGS (14)
  1. MACROGOL [Concomitant]
     Active Substance: POLYETHYLENE GLYCOLS
     Route: 048
  2. TRIMETHOPRIM. [Concomitant]
     Active Substance: TRIMETHOPRIM
     Dosage: TAKE IN MORNING
     Route: 045
     Dates: start: 20190927
  3. OMEPRAZOLE. [Suspect]
     Active Substance: OMEPRAZOLE
     Indication: PRODUCT USED FOR UNKNOWN INDICATION
     Dosage: TAKE IN MORNING
     Route: 048
  4. ACETYLSALICYLIC ACID [Concomitant]
     Active Substance: ASPIRIN
     Dosage: TAKE IN MORNING
     Route: 048
  5. HEPARINOID [Concomitant]
     Active Substance: CHONDROITIN SULFATE (BOVINE)
     Route: 061
  6. PRAVASTATIN. [Concomitant]
     Active Substance: PRAVASTATIN
     Dosage: TAKE IN MORNING
     Route: 048
  7. BECLOMETASONE [Concomitant]
     Active Substance: BECLOMETHASONE DIPROPIONATE
     Dosage: TAKE IN MORNING
     Route: 045
  8. ALFACALCIDOL [Concomitant]
     Active Substance: ALFACALCIDOL
     Dosage: TAKE IN MORNING
     Route: 048
  9. ATENOLOL. [Concomitant]
     Active Substance: ATENOLOL
     Dosage: TAKE IN MORNING
     Route: 048
  10. NEFOPAM [Concomitant]
     Active Substance: NEFOPAM
     Route: 048
  11. HYPROMELLOSE [Concomitant]
     Active Substance: HYPROMELLOSES
     Route: 031
  12. ALLOPURINOL. [Concomitant]
     Active Substance: ALLOPURINOL
     Dosage: TAKE IN MORNING
     Route: 048
  13. FERROUS SULFATE. [Concomitant]
     Active Substance: FERROUS SULFATE
     Route: 050
  14. LEVOTHYROXINE. [Concomitant]
     Active Substance: LEVOTHYROXINE
     Route: 048

REACTIONS (1)
  - Hyponatraemia [Recovering/Resolving]

NARRATIVE: CASE EVENT DATE: 20190925
